FAERS Safety Report 20700325 (Version 1)
Quarter: 2022Q2

REPORT INFORMATION
  Report Type: Spontaneous
  Country: US (occurrence: None)
  Receive Date: 20220410
  Receipt Date: 20220410
  Transmission Date: 20220721
  Serious: Yes (Disabling)
  Sender: FDA-Public Use
  Company Number: None

PATIENT
  Age: 37 Year
  Sex: Female
  Weight: 56.25 kg

DRUGS (4)
  1. SERTRALINE [Suspect]
     Active Substance: SERTRALINE HYDROCHLORIDE
     Indication: Anxiety
     Dosage: OTHER QUANTITY : 1 TABLET(S);?FREQUENCY : DAILY;?
     Route: 048
     Dates: start: 20220323, end: 20220324
  2. Ibuprofen on occasion (for pain relief as needed) [Concomitant]
  3. VITAMIN D NOS [Concomitant]
     Active Substance: VITAMIN D NOS
  4. vegan DHA supplement [Concomitant]

REACTIONS (2)
  - Tinnitus [None]
  - Sleep disorder [None]

NARRATIVE: CASE EVENT DATE: 20220324
